FAERS Safety Report 10743484 (Version 2)
Quarter: 2015Q1

REPORT INFORMATION
  Report Type: Report from Study
  Country: US (occurrence: US)
  Receive Date: 20150128
  Receipt Date: 20150211
  Transmission Date: 20150721
  Serious: Yes (Other)
  Sender: FDA-Public Use
  Company Number: US-ABBVIE-15K-163-1335598-00

PATIENT
  Age: 21 Year
  Sex: Female
  Weight: 54.48 kg

DRUGS (6)
  1. LIALDA [Concomitant]
     Active Substance: MESALAMINE
     Indication: CROHN^S DISEASE
  2. HUMIRA [Suspect]
     Active Substance: ADALIMUMAB
     Route: 058
     Dates: start: 201402, end: 201402
  3. HUMIRA [Suspect]
     Active Substance: ADALIMUMAB
     Indication: CROHN^S DISEASE
     Route: 058
     Dates: start: 201402, end: 201402
  4. HUMIRA [Suspect]
     Active Substance: ADALIMUMAB
     Route: 058
     Dates: start: 201403
  5. DAIRY CARE [Concomitant]
     Indication: LACTOSE INTOLERANCE
  6. FLORASTOR [Concomitant]
     Active Substance: SACCHAROMYCES CEREVISIAE
     Indication: PROBIOTIC THERAPY

REACTIONS (5)
  - Blood iron decreased [Recovered/Resolved]
  - Muscle strain [Recovered/Resolved]
  - Pleurisy [Recovered/Resolved]
  - Musculoskeletal chest pain [Recovered/Resolved]
  - Bronchitis [Recovered/Resolved]

NARRATIVE: CASE EVENT DATE: 201410
